FAERS Safety Report 19048598 (Version 4)
Quarter: 2021Q2

REPORT INFORMATION
  Report Type: Report from Study
  Country: CA (occurrence: CA)
  Receive Date: 20210323
  Receipt Date: 20210519
  Transmission Date: 20210717
  Serious: Yes (Hospitalization, Other)
  Sender: FDA-Public Use
  Company Number: CA-TAKEDA-2016TUS016079

PATIENT
  Age: 53 Year
  Sex: Male

DRUGS (6)
  1. SYNTHROID [Concomitant]
     Active Substance: LEVOTHYROXINE SODIUM
     Dosage: 0.1 MG, QD
  2. PENTASA [Concomitant]
     Active Substance: MESALAMINE
     Dosage: 3000 MG, QD
  3. COUMADIN [Concomitant]
     Active Substance: WARFARIN SODIUM
     Dosage: 5 MG, QD
  4. VEDOLIZUMAB [Suspect]
     Active Substance: VEDOLIZUMAB
     Dosage: 300 MILLIGRAM, Q4WEEKS
     Route: 042
     Dates: start: 20170103
  5. VEDOLIZUMAB [Suspect]
     Active Substance: VEDOLIZUMAB
     Indication: CROHN^S DISEASE
     Dosage: 300 MILLIGRAM
     Route: 042
     Dates: start: 20160510
  6. POTASSIUM [Concomitant]
     Active Substance: POTASSIUM
     Dosage: UNK UNK, QD

REACTIONS (12)
  - Muscle spasms [Not Recovered/Not Resolved]
  - Off label use [Unknown]
  - Back pain [Unknown]
  - Blood pressure decreased [Unknown]
  - Procedural haemorrhage [Unknown]
  - Sepsis [Unknown]
  - Pyrexia [Unknown]
  - Post procedural discharge [Unknown]
  - Rash [Unknown]
  - Fungal pharyngitis [Unknown]
  - Peripheral swelling [Unknown]
  - Localised infection [Unknown]

NARRATIVE: CASE EVENT DATE: 2016
